FAERS Safety Report 22219172 (Version 2)
Quarter: 2023Q2

REPORT INFORMATION
  Report Type: Spontaneous
  Country: US (occurrence: US)
  Receive Date: 20230417
  Receipt Date: 20230526
  Transmission Date: 20230721
  Serious: Yes (Hospitalization, Other)
  Sender: FDA-Public Use
  Company Number: US-PFIZER INC-PV202300066156

PATIENT
  Age: 76 Year
  Sex: Male
  Weight: 113.38 kg

DRUGS (1)
  1. TIKOSYN [Suspect]
     Active Substance: DOFETILIDE
     Indication: Arrhythmia
     Dosage: UNK
     Dates: start: 202210

REACTIONS (1)
  - Drug ineffective [Unknown]
